FAERS Safety Report 25872288 (Version 1)
Quarter: 2025Q4

REPORT INFORMATION
  Report Type: Spontaneous
  Country: CH (occurrence: CH)
  Receive Date: 20251002
  Receipt Date: 20251002
  Transmission Date: 20260117
  Serious: Yes (Other)
  Sender: ROCHE
  Company Number: None

PATIENT
  Age: 61 Year
  Sex: Female

DRUGS (1)
  1. HERCEPTIN [Suspect]
     Active Substance: TRASTUZUMAB
     Indication: HER2 positive breast cancer
     Dosage: 1 TOTAL
     Route: 065
     Dates: start: 20180627, end: 20190515

REACTIONS (5)
  - Breast pain [Recovered/Resolved]
  - Sleep disorder [Recovered/Resolved]
  - Post procedural inflammation [Recovered/Resolved]
  - Impaired work ability [Recovered/Resolved]
  - Nausea [Recovered/Resolved]

NARRATIVE: CASE EVENT DATE: 20181005
